FAERS Safety Report 7596280-4 (Version None)
Quarter: 2011Q3

REPORT INFORMATION
  Report Type: 
  Country: None (occurrence: None)
  Receive Date: 20110707
  Receipt Date: 20110630
  Transmission Date: 20111222
  Serious: Yes (Other)
  Sender: FDA-Public Use
  Company Number: FR-CEPHALON-2011003521

PATIENT
  Sex: Female

DRUGS (2)
  1. STEDIRIL [Concomitant]
  2. MODAFINIL [Suspect]
     Indication: NARCOLEPSY
     Route: 048
     Dates: start: 20050101

REACTIONS (2)
  - HEPATIC FUNCTION ABNORMAL [None]
  - HYPERTENSION [None]
